APPROVED DRUG PRODUCT: METHAZOLAMIDE
Active Ingredient: METHAZOLAMIDE
Strength: 50MG
Dosage Form/Route: TABLET;ORAL
Application: A217408 | Product #002 | TE Code: AB
Applicant: AJANTA PHARMA LTD
Approved: Feb 9, 2026 | RLD: No | RS: No | Type: RX